FAERS Safety Report 7811424-4 (Version None)
Quarter: 2011Q4

REPORT INFORMATION
  Report Type: 
  Country: None (occurrence: None)
  Receive Date: 20111013
  Receipt Date: 20111011
  Transmission Date: 20120403
  Serious: Yes (Other)
  Sender: FDA-Public Use
  Company Number: PH-PFIZER INC-2011198906

PATIENT
  Age: 28 Year
  Sex: Female

DRUGS (1)
  1. PRISTIQ [Suspect]
     Indication: MAJOR DEPRESSION
     Dosage: UNK

REACTIONS (5)
  - DECREASED APPETITE [None]
  - VOMITING [None]
  - MALAISE [None]
  - NAUSEA [None]
  - HEADACHE [None]
